FAERS Safety Report 23946137 (Version 1)
Quarter: 2024Q2

REPORT INFORMATION
  Report Type: Other
  Country: KR (occurrence: KR)
  Receive Date: 20240606
  Receipt Date: 20240606
  Transmission Date: 20240716
  Serious: Yes (Hospitalization)
  Sender: FDA-Public Use
  Company Number: KR-ASTELLAS-2024US016211

PATIENT
  Sex: Female
  Weight: 63.6 kg

DRUGS (5)
  1. VESICARE [Suspect]
     Active Substance: SOLIFENACIN SUCCINATE
     Indication: Product used for unknown indication
     Route: 048
     Dates: start: 20230930, end: 20231006
  2. TINIDAZOLE [Suspect]
     Active Substance: TINIDAZOLE
     Indication: Gastrointestinal infection
     Route: 048
     Dates: start: 20231007, end: 20231010
  3. METRONIDAZOLE [Suspect]
     Active Substance: METRONIDAZOLE
     Indication: Gastrointestinal infection
     Route: 048
     Dates: start: 20230930, end: 20231006
  4. CEFACLOR [Suspect]
     Active Substance: CEFACLOR
     Indication: Gastrointestinal infection
     Route: 048
     Dates: start: 20230930, end: 20231006
  5. MOSAPRIDE CITRATE DIHYDRATE [Suspect]
     Active Substance: MOSAPRIDE CITRATE DIHYDRATE
     Indication: Gastrointestinal infection
     Route: 048
     Dates: start: 20230930, end: 20231009

REACTIONS (3)
  - Diarrhoea [Recovering/Resolving]
  - Nausea [Recovering/Resolving]
  - Abdominal pain [Recovering/Resolving]

NARRATIVE: CASE EVENT DATE: 20231008
